FAERS Safety Report 10083971 (Version 1)
Quarter: 2014Q2

REPORT INFORMATION
  Report Type: Spontaneous
  Country: US (occurrence: US)
  Receive Date: 20140417
  Receipt Date: 20140417
  Transmission Date: 20141212
  Serious: No
  Sender: FDA-Public Use
  Company Number: US-009507513-1404USA003599

PATIENT
  Sex: Male

DRUGS (1)
  1. CLARITIN-D-12 [Suspect]
     Indication: PRODUCT USED FOR UNKNOWN INDICATION
     Dosage: 5 MG, BID
     Route: 048
     Dates: start: 20140324, end: 20140325

REACTIONS (2)
  - Unevaluable event [Not Recovered/Not Resolved]
  - Insomnia [Unknown]
